FAERS Safety Report 11966478 (Version 3)
Quarter: 2016Q3

REPORT INFORMATION
  Report Type: Report from Study
  Country: JP (occurrence: JP)
  Receive Date: 20160127
  Receipt Date: 20160708
  Transmission Date: 20161109
  Serious: Yes (Death, Hospitalization, Other)
  Sender: FDA-Public Use
  Company Number: JP-GILEAD-2015-0159859

PATIENT
  Age: 51 Year
  Sex: Female
  Weight: 49.1 kg

DRUGS (15)
  1. AMBRISENTAN [Suspect]
     Active Substance: AMBRISENTAN
     Indication: PULMONARY ARTERIAL HYPERTENSION
     Dosage: 7.5 MG, QD
     Route: 048
     Dates: start: 20110511, end: 20120625
  2. FUROSEMIDE. [Concomitant]
     Active Substance: FUROSEMIDE
     Dosage: UNK
  3. TRACLEER [Concomitant]
     Active Substance: BOSENTAN
     Indication: PULMONARY ARTERIAL HYPERTENSION
     Dosage: UNK
     Dates: start: 20120601
  4. AMBRISENTAN [Suspect]
     Active Substance: AMBRISENTAN
     Dosage: 7.5 MG, QD
     Route: 048
     Dates: start: 20110511, end: 20120516
  5. PROCYLIN [Concomitant]
     Active Substance: BERAPROST SODIUM
     Dosage: UNK
     Dates: start: 20090826, end: 20120523
  6. AMBRISENTAN [Suspect]
     Active Substance: AMBRISENTAN
     Indication: PULMONARY ARTERIAL HYPERTENSION
     Dosage: 5 MG, QD
     Route: 048
     Dates: start: 20110410, end: 20110510
  7. AMBRISENTAN [Suspect]
     Active Substance: AMBRISENTAN
     Dosage: 10 MG, QD
     Route: 048
     Dates: start: 20120517, end: 20120529
  8. AMBRISENTAN [Suspect]
     Active Substance: AMBRISENTAN
     Dosage: 7.5 MG, QD
     Route: 048
     Dates: start: 20120530, end: 20120531
  9. AMBRISENTAN [Suspect]
     Active Substance: AMBRISENTAN
     Dosage: 5 MG, QD
     Route: 048
     Dates: start: 20120601, end: 20120611
  10. AMBRISENTAN [Suspect]
     Active Substance: AMBRISENTAN
     Dosage: 2.5 MG, QD
     Route: 048
     Dates: start: 20120612, end: 20120625
  11. REVATIO [Concomitant]
     Active Substance: SILDENAFIL CITRATE
     Indication: COLLAGEN DISORDER
     Dosage: UNK
     Route: 048
     Dates: start: 20090917
  12. PROCYLIN [Concomitant]
     Active Substance: BERAPROST SODIUM
     Indication: COLLAGEN DISORDER
     Dosage: UNK
     Dates: start: 20090826
  13. FUROSEMIDE. [Concomitant]
     Active Substance: FUROSEMIDE
     Dosage: UNK
  14. FUROSEMIDE. [Concomitant]
     Active Substance: FUROSEMIDE
     Indication: COLLAGEN DISORDER
     Dosage: UNK
  15. BOSENTAN. [Concomitant]
     Active Substance: BOSENTAN
     Dosage: UNK
     Dates: start: 20120625

REACTIONS (3)
  - Cardiomegaly [Not Recovered/Not Resolved]
  - Oedema [Not Recovered/Not Resolved]
  - Pulmonary arterial hypertension [Fatal]

NARRATIVE: CASE EVENT DATE: 20111118
